FAERS Safety Report 9164166 (Version 1)
Quarter: 2013Q1

REPORT INFORMATION
  Report Type: Spontaneous
  Country: US (occurrence: None)
  Receive Date: 20130313
  Receipt Date: 20130313
  Transmission Date: 20140127
  Serious: Yes (Hospitalization)
  Sender: FDA-Public Use
  Company Number: None

PATIENT
  Age: 82 Year
  Sex: Female
  Weight: 87 kg

DRUGS (1)
  1. XARELTO [Suspect]
     Dosage: DAILY PO.
     Dates: start: 20121105, end: 20121112

REACTIONS (4)
  - Nausea [None]
  - Constipation [None]
  - Ventricular fibrillation [None]
  - Cardiac arrest [None]
